FAERS Safety Report 4438125-7 (Version None)
Quarter: 2004Q3

REPORT INFORMATION
  Report Type: 
  Country: None (occurrence: None)
  Receive Date: 20040831
  Receipt Date: 20040526
  Transmission Date: 20050211
  Serious: No
  Sender: FDA-Public Use
  Company Number: US-GLAXOSMITHKLINE-A0512249A

PATIENT
  Sex: Male

DRUGS (6)
  1. WELLBUTRIN [Suspect]
     Indication: DEPRESSION
     Dosage: 150MG PER DAY
     Route: 048
  2. INSULIN [Concomitant]
  3. BLOOD PRESSURE MEDICATION [Concomitant]
  4. THYROID MEDICATION [Concomitant]
  5. MILK OF MAGNESIUM [Concomitant]
  6. STOOL SOFTENER [Concomitant]

REACTIONS (1)
  - CONSTIPATION [None]
